FAERS Safety Report 21749206 (Version 1)
Quarter: 2022Q4

REPORT INFORMATION
  Report Type: Spontaneous
  Country: US (occurrence: None)
  Receive Date: 20221218
  Receipt Date: 20221218
  Transmission Date: 20230112
  Serious: No
  Sender: FDA-Public Use
  Company Number: None

PATIENT
  Sex: Female

DRUGS (1)
  1. BENLYSTA [Suspect]
     Active Substance: BELIMUMAB
     Dosage: 200MG OTHER SUBCUTANEOUS
     Route: 058
     Dates: start: 202211

REACTIONS (3)
  - Swelling [None]
  - Pain [None]
  - Diarrhoea [None]
